FAERS Safety Report 8933616 (Version 1)
Quarter: 2012Q4

REPORT INFORMATION
  Report Type: 
  Country: US (occurrence: US)
  Receive Date: 20121128
  Receipt Date: 20121128
  Transmission Date: 20130627
  Serious: No
  Sender: FDA-Public Use
  Company Number: US-ABBOTT-12P-163-0997782-00

PATIENT
  Sex: Male

DRUGS (1)
  1. ANDROGEL [Suspect]
     Indication: BLOOD TESTOSTERONE DECREASED
     Dosage: 4 pumps
     Route: 061
     Dates: start: 201201

REACTIONS (2)
  - Incorrect drug administration duration [Not Recovered/Not Resolved]
  - Blood testosterone decreased [Not Recovered/Not Resolved]
